FAERS Safety Report 7611155-X (Version None)
Quarter: 2011Q3

REPORT INFORMATION
  Report Type: 
  Country: None (occurrence: None)
  Receive Date: 20110715
  Receipt Date: 20110711
  Transmission Date: 20111222
  Serious: Yes (Hospitalization)
  Sender: FDA-Public Use
  Company Number: US-SANOFI-AVENTIS-2011SA044243

PATIENT
  Age: 75 Year
  Sex: Female

DRUGS (7)
  1. AMIODARONE HCL [Suspect]
     Route: 048
     Dates: end: 20110501
  2. AMIODARONE HCL [Suspect]
     Indication: ATRIAL FIBRILLATION
     Route: 048
     Dates: start: 20091201
  3. SOTALOL HCL [Suspect]
     Route: 048
  4. DABIGATRAN ETEXILATE [Suspect]
     Indication: ATRIAL FIBRILLATION
     Route: 048
     Dates: start: 20091201, end: 20110501
  5. MULTAQ [Suspect]
     Indication: ATRIAL FIBRILLATION
     Route: 048
  6. WARFARIN SODIUM [Suspect]
     Route: 048
  7. WARFARIN SODIUM [Suspect]
     Route: 048
     Dates: start: 20110601

REACTIONS (7)
  - PULMONARY TOXICITY [None]
  - PAIN [None]
  - LARGE INTESTINAL HAEMORRHAGE [None]
  - HIP FRACTURE [None]
  - BLADDER DISORDER [None]
  - DYSPNOEA [None]
  - NAUSEA [None]
